FAERS Safety Report 24414416 (Version 5)
Quarter: 2025Q3

REPORT INFORMATION
  Report Type: Spontaneous
  Country: US (occurrence: US)
  Receive Date: 20241009
  Receipt Date: 20250718
  Transmission Date: 20251021
  Serious: No
  Sender: SANOFI AVENTIS
  Company Number: US-SA-2024SA286662

PATIENT
  Sex: Male

DRUGS (5)
  1. DUPIXENT [Suspect]
     Active Substance: DUPILUMAB
     Indication: Asthma
     Dosage: 300 MG, QOW
     Route: 058
     Dates: start: 202312
  2. TYVASO DPI [Suspect]
     Active Substance: TREPROSTINIL
     Route: 065
  3. TYVASO DPI [Suspect]
     Active Substance: TREPROSTINIL
     Route: 065
  4. OFEV [Suspect]
     Active Substance: NINTEDANIB
     Route: 065
  5. BACTRIM [Suspect]
     Active Substance: SULFAMETHOXAZOLE\TRIMETHOPRIM
     Route: 065

REACTIONS (10)
  - Fatigue [Not Recovered/Not Resolved]
  - Swelling [Not Recovered/Not Resolved]
  - Acne [Unknown]
  - Abdominal pain upper [Unknown]
  - Condition aggravated [Unknown]
  - Cough [Unknown]
  - Dyspnoea exertional [Unknown]
  - Condition aggravated [Unknown]
  - Oxygen saturation decreased [Unknown]
  - Diarrhoea [Unknown]
